FAERS Safety Report 24721301 (Version 1)
Quarter: 2024Q4

REPORT INFORMATION
  Report Type: Report from Study
  Country: IN (occurrence: IN)
  Receive Date: 20241211
  Receipt Date: 20241211
  Transmission Date: 20250115
  Serious: Yes (Other)
  Sender: NOVARTIS
  Company Number: IN-002147023-NVSC2023IN043922

PATIENT
  Sex: Male

DRUGS (2)
  1. TASIGNA [Suspect]
     Active Substance: NILOTINIB
     Indication: Chronic myeloid leukaemia
     Dosage: 400 MG, BID
     Route: 048
     Dates: start: 20181008
  2. TASIGNA [Suspect]
     Active Substance: NILOTINIB
     Dosage: 200 MG, BID (BD)
     Route: 048

REACTIONS (8)
  - Type 2 diabetes mellitus [Unknown]
  - Haemoglobin decreased [Unknown]
  - Hypertension [Unknown]
  - Platelet count decreased [Unknown]
  - Pallor [Unknown]
  - Cough [Unknown]
  - Metabolic dysfunction-associated liver disease [Unknown]
  - Off label use [Unknown]
